FAERS Safety Report 23830589 (Version 1)
Quarter: 2024Q2

REPORT INFORMATION
  Report Type: Spontaneous
  Country: US (occurrence: None)
  Receive Date: 20240507
  Receipt Date: 20240507
  Transmission Date: 20240716
  Serious: Yes (Hospitalization)
  Sender: FDA-Public Use
  Company Number: None

PATIENT
  Age: 80 Year
  Sex: Male
  Weight: 106 kg

DRUGS (1)
  1. ATEZOLIZUMAB [Suspect]
     Active Substance: ATEZOLIZUMAB
     Indication: Lung neoplasm malignant
     Dosage: OTHER FREQUENCY : UNKNOWN;?
     Route: 042
     Dates: start: 20240320, end: 20240502

REACTIONS (3)
  - Anaphylactic reaction [None]
  - Bradycardia [None]
  - Malaise [None]

NARRATIVE: CASE EVENT DATE: 20240502
